FAERS Safety Report 12561929 (Version 2)
Quarter: 2021Q2

REPORT INFORMATION
  Report Type: Report from Study
  Country: US (occurrence: US)
  Receive Date: 20160715
  Receipt Date: 20210603
  Transmission Date: 20210716
  Serious: Yes (Other)
  Sender: FDA-Public Use
  Company Number: US-JAZZ-2016-US-006550

PATIENT
  Age: 49 Year
  Sex: Female

DRUGS (35)
  1. XYREM [Suspect]
     Active Substance: SODIUM OXYBATE
     Indication: NARCOLEPSY
     Dosage: 4.5 GRAM, BID
     Route: 048
     Dates: start: 201012
  2. L?5?METHYLTETRAHYDROFOLATE [Concomitant]
  3. AMOXICILLIN [AMOXICILLIN TRIHYDRATE] [Concomitant]
     Active Substance: AMOXICILLIN
  4. PHENTERMINE [PHENTERMINE RESIN] [Concomitant]
  5. AMITRIPTYLINE HCL [Concomitant]
     Active Substance: AMITRIPTYLINE
  6. CHROMIUM [Concomitant]
     Active Substance: CHROMIC CHLORIDE\CHROMIUM
  7. CYANOCOBALAMIN. [Concomitant]
     Active Substance: CYANOCOBALAMIN
  8. VYVANSE [Concomitant]
     Active Substance: LISDEXAMFETAMINE DIMESYLATE
  9. FLEXERIL [Concomitant]
     Active Substance: CYCLOBENZAPRINE HYDROCHLORIDE
  10. ASPIRIN [ACETYLSALICYLIC ACID] [Concomitant]
     Active Substance: ASPIRIN
  11. MUCINEX [Concomitant]
     Active Substance: GUAIFENESIN
  12. NEURONTIN [Concomitant]
     Active Substance: GABAPENTIN
  13. PROVIGIL [Concomitant]
     Active Substance: MODAFINIL
  14. UBIQUINOL BIOACTIVE [Concomitant]
  15. FIORICET [Concomitant]
     Active Substance: ACETAMINOPHEN\BUTALBITAL\CAFFEINE
  16. ADDERALL [Concomitant]
     Active Substance: AMPHETAMINE ASPARTATE\AMPHETAMINE SULFATE\DEXTROAMPHETAMINE SACCHARATE\DEXTROAMPHETAMINE SULFATE
  17. CELEBREX [Concomitant]
     Active Substance: CELECOXIB
  18. CIPRO [Concomitant]
     Active Substance: CIPROFLOXACIN HYDROCHLORIDE
  19. CYCLOBENZAPRINE [CYCLOBENZAPRINE HYDROCHLORIDE] [Concomitant]
     Active Substance: CYCLOBENZAPRINE HYDROCHLORIDE
  20. HYDROCODONE [Concomitant]
     Active Substance: HYDROCODONE
  21. NIACIN. [Concomitant]
     Active Substance: NIACIN
  22. ACETYL L?CARNITINE [ACETYLCARNITINE] [Concomitant]
  23. ALA [PARAFFIN] [Concomitant]
  24. ZOFRAN [Concomitant]
     Active Substance: ONDANSETRON HYDROCHLORIDE
  25. FIORINAL [ACETYLSALICYLIC ACID;BUTALBITAL;CAFFEINE;PHENACETIN] [Concomitant]
     Active Substance: ASPIRIN\BUTALBITAL\CAFFEINE\PHENACETIN
  26. VITAMIN D3 [Concomitant]
     Active Substance: CHOLECALCIFEROL
  27. VIVELLE?DOT [Concomitant]
     Active Substance: ESTRADIOL
  28. PREVACID [Concomitant]
     Active Substance: LANSOPRAZOLE
  29. PROSCAR [Concomitant]
     Active Substance: FINASTERIDE
  30. GINGER [ZINGIBER OFFICINALE] [Concomitant]
     Active Substance: GINGER
  31. MEDROL [Concomitant]
     Active Substance: METHYLPREDNISOLONE
  32. VYTORIN [Concomitant]
     Active Substance: EZETIMIBE\SIMVASTATIN
  33. FLUCONAZOLE. [Concomitant]
     Active Substance: FLUCONAZOLE
  34. PROGESTERONE. [Concomitant]
     Active Substance: PROGESTERONE
  35. ALBUTEROL SULFATE. [Concomitant]
     Active Substance: ALBUTEROL SULFATE

REACTIONS (1)
  - Diverticulitis [Unknown]

NARRATIVE: CASE EVENT DATE: 20160404
